FAERS Safety Report 5892179-X (Version None)
Quarter: 2008Q3

REPORT INFORMATION
  Report Type: 
  Country: None (occurrence: None)
  Receive Date: 20080918
  Receipt Date: 20080910
  Transmission Date: 20090109
  Serious: Yes (Hospitalization, Other)
  Sender: FDA-Public Use
  Company Number: T08-JPN-01903-01

PATIENT
  Age: 80 Year
  Sex: Male

DRUGS (10)
  1. MEMANTINE (OPEN-LABEL) (MEMANTINE HYDROCHLORIDE) (TABLETS) [Suspect]
     Indication: DEMENTIA ALZHEIMER'S TYPE
     Dosage: 20 MG (20 MG,ONCE DAILY AFTER BREAKFAST, ORAL; 20 MG (20 MG,ONCE DAILY AFTER BREAKFAST), ORAL
     Route: 048
     Dates: start: 20080318, end: 20080507
  2. MEMANTINE (OPEN-LABEL) (MEMANTINE HYDROCHLORIDE) (TABLETS) [Suspect]
     Indication: DEMENTIA ALZHEIMER'S TYPE
     Dosage: 20 MG (20 MG,ONCE DAILY AFTER BREAKFAST, ORAL; 20 MG (20 MG,ONCE DAILY AFTER BREAKFAST), ORAL
     Route: 048
     Dates: start: 20080511, end: 20080706
  3. DISTIGIMINE BROMIDE [Suspect]
     Indication: URINARY RETENTION
     Dosage: 5 MG (5 MG); 15 MG (15 MG), ORAL
     Route: 048
     Dates: start: 20080526, end: 20080621
  4. DISTIGIMINE BROMIDE [Suspect]
     Indication: URINARY RETENTION
     Dosage: 5 MG (5 MG); 15 MG (15 MG), ORAL
     Route: 048
     Dates: start: 20080609, end: 20080706
  5. PIRENOXINE (PIRENOXINE) (PIRENOXINE) [Concomitant]
  6. PRANOPROFEN (PRANOPROFEN) (PRANOPROFEN) [Concomitant]
  7. NIFEDIPINE [Concomitant]
  8. ASPIRIN [Concomitant]
  9. MAGNESIUM HYDROXIDE TAB [Concomitant]
  10. AMLODIPINE BESYLATE [Concomitant]

REACTIONS (19)
  - APNOEA [None]
  - BLOOD PRESSURE INCREASED [None]
  - CEREBRAL AMYLOID ANGIOPATHY [None]
  - CEREBRAL HAEMORRHAGE [None]
  - CHOLINERGIC SYNDROME [None]
  - CONVULSION [None]
  - DEPRESSED LEVEL OF CONSCIOUSNESS [None]
  - DIARRHOEA [None]
  - HAEMORRHAGE SUBCUTANEOUS [None]
  - HEART RATE INCREASED [None]
  - HYPERHIDROSIS [None]
  - INCONTINENCE [None]
  - OXYGEN SATURATION DECREASED [None]
  - PANCREATITIS ACUTE [None]
  - PERIPHERAL COLDNESS [None]
  - PNEUMONIA [None]
  - RESPIRATORY DEPRESSION [None]
  - URINARY RETENTION [None]
  - URINARY TRACT INFECTION [None]
